FAERS Safety Report 4508007-0 (Version None)
Quarter: 2004Q4

REPORT INFORMATION
  Report Type: 
  Country: None (occurrence: None)
  Receive Date: 20041122
  Receipt Date: 20041122
  Transmission Date: 20050328
  Serious: Yes (Other)
  Sender: FDA-Public Use
  Company Number: None

PATIENT
  Age: 47 Year
  Sex: Male
  Weight: 112 kg

DRUGS (1)
  1. GATIFLOXACIN (BM SQUIBB) [Suspect]
     Indication: INFECTION
     Dosage: 400 MG PO QD
     Route: 048
     Dates: start: 20041030

REACTIONS (4)
  - BLOOD GLUCOSE DECREASED [None]
  - CHEST DISCOMFORT [None]
  - DIZZINESS [None]
  - NERVOUSNESS [None]
